FAERS Safety Report 24895161 (Version 1)
Quarter: 2025Q1

REPORT INFORMATION
  Report Type: Spontaneous
  Country: CN (occurrence: CN)
  Receive Date: 20250128
  Receipt Date: 20250128
  Transmission Date: 20250409
  Serious: Yes (Hospitalization, Other)
  Sender: BAXTER
  Company Number: None

PATIENT
  Age: 62 Year
  Sex: Female

DRUGS (5)
  1. CYCLOPHOSPHAMIDE [Suspect]
     Active Substance: CYCLOPHOSPHAMIDE
     Indication: Lymphoma
     Route: 041
     Dates: start: 20241230, end: 20241230
  2. DOXORUBICIN HYDROCHLORIDE [Suspect]
     Active Substance: DOXORUBICIN HYDROCHLORIDE
     Indication: Lymphoma
     Route: 041
     Dates: start: 20241230, end: 20241230
  3. MABTHERA [Suspect]
     Active Substance: RITUXIMAB
     Indication: Lymphoma
     Route: 065
     Dates: start: 20241230
  4. VINDESINE [Suspect]
     Active Substance: VINDESINE
     Indication: Lymphoma
     Route: 065
     Dates: start: 20241230
  5. PREDNISONE ACETATE [Suspect]
     Active Substance: PREDNISONE ACETATE
     Indication: Lymphoma
     Route: 065
     Dates: start: 20241230, end: 20250103

REACTIONS (6)
  - Disease recurrence [Unknown]
  - Myelosuppression [Recovered/Resolved]
  - Granulocyte count decreased [Unknown]
  - Asthenia [Unknown]
  - Hyperpyrexia [Unknown]
  - Decreased appetite [Unknown]

NARRATIVE: CASE EVENT DATE: 20250112
